FAERS Safety Report 8485081-0 (Version None)
Quarter: 2012Q3

REPORT INFORMATION
  Report Type: 
  Country: None (occurrence: None)
  Receive Date: 20120703
  Receipt Date: 20120622
  Transmission Date: 20120928
  Serious: Yes (Other)
  Sender: FDA-Public Use
  Company Number: US-JNJFOC-20120614335

PATIENT
  Sex: Male
  Weight: 74.84 kg

DRUGS (5)
  1. PREDNISONE [Suspect]
     Indication: PROSTATE CANCER
     Route: 048
     Dates: start: 20120101
  2. COUMADIN [Concomitant]
     Indication: THROMBOSIS
     Route: 048
     Dates: start: 20110101, end: 20120101
  3. CRESTOR [Concomitant]
     Indication: CARDIAC DISORDER
     Route: 048
  4. GABAPENTIN [Concomitant]
     Route: 048
  5. ZYTIGA [Suspect]
     Indication: PROSTATE CANCER
     Route: 048
     Dates: start: 20120101

REACTIONS (3)
  - BLOOD GLUCOSE INCREASED [None]
  - PAIN [None]
  - PROTHROMBIN TIME SHORTENED [None]
